FAERS Safety Report 7629594-X (Version None)
Quarter: 2011Q3

REPORT INFORMATION
  Report Type: 
  Country: None (occurrence: None)
  Receive Date: 20110722
  Receipt Date: 20110713
  Transmission Date: 20111222
  Serious: Yes (Hospitalization, Other)
  Sender: FDA-Public Use
  Company Number: DE-ROCHE-731979

PATIENT
  Sex: Male
  Weight: 150 kg

DRUGS (2)
  1. TENOFOVIR DISOPROXIL FUMARATE [Suspect]
     Dosage: DOSE: 300; LASET DOSE PRIOR TO SAE: 24 SEP 2010.
     Route: 048
     Dates: start: 20091030
  2. PEGINTERFERON ALFA-2A [Suspect]
     Dosage: LAST DOSE PRIOR TO SAE: 23 SEPTEMBER 2010
     Route: 058
     Dates: start: 20091030

REACTIONS (3)
  - PNEUMONIA [None]
  - THROMBOSIS [None]
  - ABSCESS SWEAT GLAND [None]
